FAERS Safety Report 8282007-X (Version None)
Quarter: 2012Q2

REPORT INFORMATION
  Report Type: 
  Country: None (occurrence: None)
  Receive Date: 20120410
  Receipt Date: 20120315
  Transmission Date: 20120825
  Serious: Yes (Hospitalization)
  Sender: FDA-Public Use
  Company Number: 2012-0124

PATIENT
  Age: 52 Year
  Sex: Female

DRUGS (4)
  1. SOMATULINE DEPOT [Suspect]
     Indication: NEUROENDOCRINE TUMOUR
     Dosage: 90 MG (90 MG,1 IN 28 D),INTRAMUSCULAR
     Route: 030
     Dates: start: 20100607
  2. OCTREOTRIDE (OCTREOTIDE) [Concomitant]
  3. METOPROLOL TARTRATE [Concomitant]
  4. NIFEDIPINE [Concomitant]

REACTIONS (1)
  - HEPATIC EMBOLISATION [None]
